FAERS Safety Report 9692930 (Version 1)
Quarter: 2013Q4

REPORT INFORMATION
  Report Type: Spontaneous
  Country: US (occurrence: US)
  Receive Date: 20131118
  Receipt Date: 20131118
  Transmission Date: 20140711
  Serious: Yes (Hospitalization)
  Sender: FDA-Public Use
  Company Number: US-GLAXOSMITHKLINE-A1012505A

PATIENT
  Age: 64 Year
  Sex: Male

DRUGS (1)
  1. COREG CR [Suspect]
     Dosage: 40MG UNKNOWN
     Route: 048
     Dates: start: 20121025

REACTIONS (1)
  - Cerebrovascular accident [Unknown]
